FAERS Safety Report 14624029 (Version 2)
Quarter: 2018Q3

REPORT INFORMATION
  Report Type: Report from Study
  Country: DE (occurrence: DE)
  Receive Date: 20180312
  Receipt Date: 20180801
  Transmission Date: 20181010
  Serious: Yes (Hospitalization)
  Sender: FDA-Public Use
  Company Number: DE-TEVA-2018-DE-867676

PATIENT
  Sex: Female
  Weight: 62 kg

DRUGS (3)
  1. CANDESARTAN CILEXETIL. [Suspect]
     Active Substance: CANDESARTAN CILEXETIL
     Indication: HYPOTENSION
     Dosage: 16 MILLIGRAM DAILY;
     Route: 048
     Dates: start: 20161104, end: 20161111
  2. TASIGNA [Suspect]
     Active Substance: NILOTINIB
     Indication: CHRONIC MYELOID LEUKAEMIA
     Dosage: 600 MILLIGRAM DAILY;
     Route: 048
     Dates: start: 20150218
  3. SALBUTAMOL [Concomitant]
     Active Substance: ALBUTEROL
     Indication: INFECTIOUS PLEURAL EFFUSION
     Route: 065
     Dates: start: 20141211

REACTIONS (3)
  - Dyspepsia [Unknown]
  - Gastrooesophageal reflux disease [Unknown]
  - Hypotension [Recovered/Resolved]

NARRATIVE: CASE EVENT DATE: 20161105
